FAERS Safety Report 10479161 (Version 1)
Quarter: 2014Q3

REPORT INFORMATION
  Report Type: Spontaneous
  Country: SE (occurrence: SE)
  Receive Date: 20140926
  Receipt Date: 20140926
  Transmission Date: 20150326
  Serious: Yes (Hospitalization)
  Sender: FDA-Public Use
  Company Number: SE-PFIZER INC-2014264341

PATIENT
  Age: 79 Year
  Sex: Male

DRUGS (2)
  1. LESTID [Suspect]
     Active Substance: COLESTIPOL
     Indication: BILIARY CIRRHOSIS PRIMARY
     Route: 048
     Dates: start: 20140806, end: 20140819
  2. URSOFALK [Concomitant]
     Active Substance: URSODIOL
     Dates: start: 20140806, end: 20140819

REACTIONS (2)
  - Jaundice [Not Recovered/Not Resolved]
  - Abdominal pain [Not Recovered/Not Resolved]

NARRATIVE: CASE EVENT DATE: 20140809
